FAERS Safety Report 17799998 (Version 4)
Quarter: 2020Q3

REPORT INFORMATION
  Report Type: Spontaneous
  Country: US (occurrence: US)
  Receive Date: 20200518
  Receipt Date: 20200729
  Transmission Date: 20201102
  Serious: Yes (Other)
  Sender: FDA-Public Use
  Company Number: US-PFIZER INC-2018268667

PATIENT
  Age: 72 Year
  Sex: Female
  Weight: 86.17 kg

DRUGS (10)
  1. MICARDIS [Concomitant]
     Active Substance: TELMISARTAN
     Dosage: 20 MG, UNK
  2. LEVOFLOXACIN. [Concomitant]
     Active Substance: LEVOFLOXACIN
     Dosage: 250 MG, UNK
  3. ADVAIR DISKUS [Concomitant]
     Active Substance: FLUTICASONE PROPIONATE\SALMETEROL XINAFOATE
     Dosage: UNK (FLUTICASONE:100, SALMETEROL:50)
  4. FLAGYL [Concomitant]
     Active Substance: METRONIDAZOLE\METRONIDAZOLE HYDROCHLORIDE
     Dosage: 250 MG, UNK
  5. GENOTROPIN MQ [Suspect]
     Active Substance: SOMATROPIN
     Indication: DWARFISM
     Dosage: 0.4 MG, DAILY
     Route: 058
     Dates: start: 2000
  6. NORDITROPIN [Suspect]
     Active Substance: SOMATROPIN
     Dosage: UNK
  7. NEXIUM [Concomitant]
     Active Substance: ESOMEPRAZOLE MAGNESIUM
     Dosage: 20 MG, UNK
  8. AMOXICILLIN. [Concomitant]
     Active Substance: AMOXICILLIN
     Dosage: 250 MG, UNK
  9. GENOTROPIN MQ [Suspect]
     Active Substance: SOMATROPIN
     Indication: HYPOPITUITARISM
  10. CODEINE SULFATE. [Concomitant]
     Active Substance: CODEINE SULFATE
     Dosage: 30 MG, UNK

REACTIONS (2)
  - Reaction to preservatives [Unknown]
  - Anaphylactic shock [Unknown]
